FAERS Safety Report 6570492-0 (Version None)
Quarter: 2010Q1

REPORT INFORMATION
  Report Type: 
  Country: None (occurrence: None)
  Receive Date: 20100204
  Receipt Date: 20091007
  Transmission Date: 20100710
  Serious: No
  Sender: FDA-Public Use
  Company Number: A0810738A

PATIENT
  Age: 52 Year
  Sex: Female

DRUGS (5)
  1. ARIXTRA [Suspect]
     Indication: STENT PLACEMENT
     Dosage: 7.5MG PER DAY
     Route: 058
     Dates: start: 20090930, end: 20091005
  2. CARDIZEM [Concomitant]
  3. COUMADIN [Concomitant]
  4. AMITIZA [Concomitant]
  5. TYLENOL (CAPLET) [Concomitant]

REACTIONS (6)
  - APPLICATION SITE NODULE [None]
  - CONTUSION [None]
  - HAEMATOMA [None]
  - INJECTION SITE SWELLING [None]
  - SWELLING [None]
  - TENDERNESS [None]
